FAERS Safety Report 11096359 (Version 1)
Quarter: 2015Q2

REPORT INFORMATION
  Report Type: Spontaneous
  Country: US (occurrence: None)
  Receive Date: 20150506
  Receipt Date: 20150506
  Transmission Date: 20150821
  Serious: Yes (Disabling)
  Sender: FDA-Public Use
  Company Number: None

PATIENT
  Age: 59 Year
  Sex: Male
  Weight: 99.79 kg

DRUGS (14)
  1. CLONAPAPAM [Concomitant]
  2. OXYCONTIN [Concomitant]
     Active Substance: OXYCODONE HYDROCHLORIDE
  3. METFORMINVESICARE [Concomitant]
  4. ABILIFY [Suspect]
     Active Substance: ARIPIPRAZOLE
     Indication: DEPRESSION
     Dosage: 1 PILL, AT BEDTIME, TAKEN BY MOUTH
     Route: 048
  5. TRAMADOL ER [Concomitant]
     Active Substance: TRAMADOL HYDROCHLORIDE
  6. ASPIRIN. [Concomitant]
     Active Substance: ASPIRIN
  7. DEXILLANT [Concomitant]
  8. VICTOZA [Concomitant]
     Active Substance: LIRAGLUTIDE
  9. CENTRUM SILVER [Concomitant]
     Active Substance: VITAMINS
  10. VITAMIN D [Concomitant]
     Active Substance: CHOLECALCIFEROL
  11. CARVEDILOL. [Concomitant]
     Active Substance: CARVEDILOL
  12. PRISTIQ EXTENDED RELEASE [Concomitant]
     Active Substance: DESVENLAFAXINE SUCCINATE
  13. ATORVASTATIN [Concomitant]
     Active Substance: ATORVASTATIN
  14. GLUCOSAMINE/CHONDROITIN /08437701/ [Concomitant]
     Active Substance: CHONDROITIN SULFATE (BOVINE)\GLUCOSAMINE SULFATE

REACTIONS (6)
  - Abdominal pain [None]
  - Constipation [None]
  - Abdominal distension [None]
  - Abdominal discomfort [None]
  - Flatulence [None]
  - Nausea [None]

NARRATIVE: CASE EVENT DATE: 20150127
